FAERS Safety Report 19064629 (Version 2)
Quarter: 2021Q2

REPORT INFORMATION
  Report Type: Report from Study
  Country: US (occurrence: US)
  Receive Date: 20210326
  Receipt Date: 20210402
  Transmission Date: 20210717
  Serious: Yes (Other)
  Sender: FDA-Public Use
  Company Number: US-GILEAD-2020-0462945

PATIENT
  Age: 21 Year
  Sex: Male
  Weight: 57.6 kg

DRUGS (21)
  1. ACETAMINOPHEN. [Suspect]
     Active Substance: ACETAMINOPHEN
     Dosage: 200 MG, PRN
     Route: 048
     Dates: start: 20200430
  2. VANCOMYCIN [Suspect]
     Active Substance: VANCOMYCIN
     Indication: PRODUCT USED FOR UNKNOWN INDICATION
     Dosage: 750 MG, Q8H
     Route: 042
     Dates: start: 20200418, end: 20200422
  3. REMDESIVIR. [Suspect]
     Active Substance: REMDESIVIR
     Indication: COVID-19
     Dosage: 200 MG, ONCE
     Route: 042
     Dates: start: 20200417, end: 20200417
  4. OFIRMEV [Suspect]
     Active Substance: ACETAMINOPHEN
     Indication: PRODUCT USED FOR UNKNOWN INDICATION
     Dosage: 1 G, PRN
     Route: 042
     Dates: start: 20200417, end: 20200419
  5. LOVENOX HP [Concomitant]
     Active Substance: ENOXAPARIN SODIUM
     Dosage: UNK
     Dates: start: 20200417
  6. LOPERAMIDE [Concomitant]
     Active Substance: LOPERAMIDE
     Dosage: UNK
     Dates: start: 20200417
  7. MELATONIN [Concomitant]
     Active Substance: MELATONIN
     Dosage: UNK
     Dates: start: 20200417
  8. SEVELAMER [Concomitant]
     Active Substance: SEVELAMER
  9. ZOSYN [Concomitant]
     Active Substance: PIPERACILLIN SODIUM\TAZOBACTAM SODIUM
     Dosage: UNK
     Dates: start: 20200418
  10. PRECEDEX [Concomitant]
     Active Substance: DEXMEDETOMIDINE HYDROCHLORIDE
     Dosage: UNK
     Dates: start: 20200418
  11. FENTANYL. [Concomitant]
     Active Substance: FENTANYL
     Dosage: UNK
     Dates: start: 20200418
  12. PROPOFOL. [Concomitant]
     Active Substance: PROPOFOL
     Dosage: UNK
     Dates: start: 20200418
  13. LEVOPHED [Concomitant]
     Active Substance: NOREPINEPHRINE BITARTRATE
     Dosage: UNK
     Dates: start: 20200418
  14. REMDESIVIR. [Suspect]
     Active Substance: REMDESIVIR
     Dosage: 100 MG
     Route: 042
     Dates: start: 20200418, end: 20200418
  15. MIDAZOLAM. [Concomitant]
     Active Substance: MIDAZOLAM
     Dosage: UNK
     Dates: start: 20200418
  16. CISATRACURIUM. [Concomitant]
     Active Substance: CISATRACURIUM
     Dosage: UNK
     Dates: start: 20200418
  17. ACETAMINOPHEN. [Suspect]
     Active Substance: ACETAMINOPHEN
     Indication: PRODUCT USED FOR UNKNOWN INDICATION
     Dosage: 650 MG, PRN
     Route: 048
     Dates: start: 20200416, end: 20200417
  18. ROBAXIN [Concomitant]
     Active Substance: METHOCARBAMOL
     Dosage: UNK
     Dates: start: 20200417
  19. VASOPRESSIN. [Concomitant]
     Active Substance: VASOPRESSIN
     Dosage: UNK
     Dates: start: 20200418
  20. DOBUTAMINE [Concomitant]
     Active Substance: DOBUTAMINE HYDROCHLORIDE
     Dosage: UNK
     Dates: start: 20200421, end: 20200424
  21. HEPARIN [Concomitant]
     Active Substance: HEPARIN SODIUM

REACTIONS (11)
  - White blood cell count increased [Recovered/Resolved]
  - Septic shock [Recovered/Resolved]
  - Cardiogenic shock [Recovered/Resolved]
  - Prothrombin time prolonged [Recovered/Resolved]
  - Blood creatinine increased [Recovered/Resolved]
  - Blood calcium decreased [Recovered/Resolved]
  - Blood urea increased [Recovered/Resolved]
  - Alanine aminotransferase increased [Recovered/Resolved]
  - Activated partial thromboplastin time prolonged [Recovered/Resolved]
  - Haematocrit decreased [Not Recovered/Not Resolved]
  - Aspartate aminotransferase increased [Recovered/Resolved]

NARRATIVE: CASE EVENT DATE: 20200418
